FAERS Safety Report 6095986-6 (Version None)
Quarter: 2009Q1

REPORT INFORMATION
  Report Type: 
  Country: None (occurrence: None)
  Receive Date: 20090227
  Receipt Date: 20080825
  Transmission Date: 20090719
  Serious: Yes (Life-Threatening)
  Sender: FDA-Public Use
  Company Number: A0740511A

PATIENT
  Age: 32 Year
  Sex: Female
  Weight: 59.1 kg

DRUGS (4)
  1. LAMICTAL [Suspect]
     Dosage: 200MG TWICE PER DAY
     Route: 048
     Dates: start: 20061121, end: 20070208
  2. CELEXA [Concomitant]
     Indication: DEPRESSION
     Dosage: 30MG PER DAY
     Route: 048
     Dates: start: 20061018
  3. SYNTHROID [Concomitant]
     Indication: HYPOTHYROIDISM
     Dosage: 250MG PER DAY
     Route: 048
     Dates: start: 20070112
  4. RADIOACTIVE IODINE [Concomitant]
     Dates: start: 20061201

REACTIONS (2)
  - DRUG EXPOSURE BEFORE PREGNANCY [None]
  - WHITE BLOOD CELL COUNT DECREASED [None]
